FAERS Safety Report 6028246-X (Version None)
Quarter: 2009Q1

REPORT INFORMATION
  Report Type: 
  Country: None (occurrence: None)
  Receive Date: 20090106
  Receipt Date: 20081204
  Transmission Date: 20090719
  Serious: Yes (Hospitalization)
  Sender: FDA-Public Use
  Company Number: AU-PFIZER INC-2008086615

PATIENT
  Sex: Female
  Weight: 70 kg

DRUGS (21)
  1. GABAPENTIN [Suspect]
     Indication: PAIN
     Dosage: UNK
     Route: 048
     Dates: start: 20081005, end: 20081009
  2. FENTANYL CITRATE [Suspect]
     Dosage: 50MCG/HR  EVERY THIRD DAY
     Route: 062
  3. AVANZA [Suspect]
     Dosage: 15MG  NOCTE TDD:15MG
  4. NORMISON [Suspect]
     Dosage: 10MG  NOCTE TDD:10MG
  5. PAROXETINE [Suspect]
     Dosage: 40MG  MANE TDD:40MG
  6. CALTRATE [Concomitant]
  7. CLOPIDOGREL [Concomitant]
  8. DIABEX [Concomitant]
  9. DIAMICRON [Concomitant]
  10. GLUCOSAMINE HYDROCHLORIDE [Concomitant]
  11. IRBESARTAN [Concomitant]
  12. LASIX [Concomitant]
  13. NEXIUM [Concomitant]
  14. NORMISON [Concomitant]
  15. PANAMAX [Concomitant]
  16. PHYSIOTENS [Concomitant]
  17. PRAVACHOL [Concomitant]
  18. ROCALTROL [Concomitant]
  19. SOTALOL HCL [Concomitant]
  20. LEVOTHYROXINE SODIUM [Concomitant]
  21. ZANIDIP [Concomitant]

REACTIONS (5)
  - ATAXIA [None]
  - INCORRECT DOSE ADMINISTERED [None]
  - NAUSEA [None]
  - PYREXIA [None]
  - SOMNOLENCE [None]
